FAERS Safety Report 21364128 (Version 1)
Quarter: 2022Q3

REPORT INFORMATION
  Report Type: Spontaneous
  Country: US (occurrence: None)
  Receive Date: 20220921
  Receipt Date: 20220921
  Transmission Date: 20221026
  Serious: Yes (Other)
  Sender: FDA-Public Use
  Company Number: None

PATIENT
  Age: 48 Year
  Sex: Male
  Weight: 85.5 kg

DRUGS (1)
  1. INFLECTRA [Suspect]
     Active Substance: INFLIXIMAB-DYYB
     Indication: Psoriatic arthropathy

REACTIONS (6)
  - Pyrexia [None]
  - Pain [None]
  - Headache [None]
  - Infection [None]
  - Hepatic enzyme increased [None]
  - Drug ineffective [None]

NARRATIVE: CASE EVENT DATE: 20220910
